FAERS Safety Report 8170926-4 (Version None)
Quarter: 2012Q1

REPORT INFORMATION
  Report Type: 
  Country: None (occurrence: None)
  Receive Date: 20120228
  Receipt Date: 20120220
  Transmission Date: 20120608
  Serious: Yes (Hospitalization)
  Sender: FDA-Public Use
  Company Number: US-ACTELION-A-US2010-39519

PATIENT

DRUGS (3)
  1. TRACLEER [Suspect]
     Indication: PULMONARY ARTERIAL HYPERTENSION
     Dosage: UNK
     Route: 048
  2. REVATIO [Concomitant]
  3. COUMADIN [Concomitant]

REACTIONS (6)
  - OEDEMA [None]
  - FLUSHING [None]
  - HAEMORRHAGE [None]
  - PAIN IN EXTREMITY [None]
  - NERVE INJURY [None]
  - HAEMATOMA [None]
